FAERS Safety Report 7894176-1 (Version None)
Quarter: 2011Q4

REPORT INFORMATION
  Report Type: 
  Country: None (occurrence: None)
  Receive Date: 20111104
  Receipt Date: 20111020
  Transmission Date: 20120403
  Serious: Yes (Other)
  Sender: FDA-Public Use
  Company Number: PHHY2011JP58285

PATIENT
  Sex: Male
  Weight: 61 kg

DRUGS (10)
  1. PREDNISOLONE [Suspect]
     Indication: RENAL TRANSPLANT
     Dosage: UNK UKN, UNK
     Route: 048
     Dates: start: 20091216
  2. HUMULIN R [Concomitant]
     Dosage: 30 UNITS DAILY
     Route: 058
     Dates: start: 20100318
  3. SIMULECT [Suspect]
     Indication: RENAL TRANSPLANT
     Dosage: 20 MG,
     Route: 042
     Dates: start: 20091215, end: 20091215
  4. GRACEPT [Suspect]
     Indication: RENAL TRANSPLANT
     Dosage: 12 MG, DAILY
     Route: 048
     Dates: start: 20091210, end: 20091214
  5. PROGRAF [Concomitant]
     Indication: RENAL TRANSPLANT
     Dosage: 3.5 MG, DAILY
     Route: 042
     Dates: start: 20091215, end: 20091215
  6. PREDNISOLONE [Concomitant]
     Indication: RENAL TRANSPLANT
     Dosage: 50 MG DAILY
     Route: 042
     Dates: start: 20091215, end: 20091215
  7. BREDININ [Suspect]
     Indication: RENAL TRANSPLANT
     Dosage: 350 MG, DAILY
     Route: 048
     Dates: start: 20091216
  8. GRACEPT [Suspect]
     Dosage: UNK UKN, UNK
     Route: 048
     Dates: start: 20091216, end: 20100318
  9. NEORAL [Concomitant]
     Indication: RENAL TRANSPLANT
     Dosage: UNK UKN, UNK
     Route: 048
     Dates: start: 20100319
  10. SIMULECT [Suspect]
     Dosage: 20 MG,
     Route: 042
     Dates: start: 20091219, end: 20091219

REACTIONS (5)
  - BLOOD GLUCOSE INCREASED [None]
  - URETERIC STENOSIS [None]
  - RENAL IMPAIRMENT [None]
  - URINARY TRACT DISORDER [None]
  - DIABETES MELLITUS [None]
